FAERS Safety Report 5932924-8 (Version None)
Quarter: 2008Q4

REPORT INFORMATION
  Report Type: 
  Country: None (occurrence: None)
  Receive Date: 20081028
  Receipt Date: 20081003
  Transmission Date: 20090506
  Serious: Yes (Hospitalization)
  Sender: FDA-Public Use
  Company Number: GB-TEVA-179268ISR

PATIENT
  Sex: Male

DRUGS (1)
  1. GABAPENTIN [Suspect]
     Indication: HERPES ZOSTER

REACTIONS (3)
  - CHILLS [None]
  - HYPERHIDROSIS [None]
  - WITHDRAWAL SYNDROME [None]
